FAERS Safety Report 24303386 (Version 2)
Quarter: 2024Q4

REPORT INFORMATION
  Report Type: Spontaneous
  Country: US (occurrence: US)
  Receive Date: 20240910
  Receipt Date: 20241104
  Transmission Date: 20250114
  Serious: Yes (Other)
  Sender: PFIZER
  Company Number: US-PFIZER INC-202400252129

PATIENT
  Age: 68 Year
  Sex: Female

DRUGS (1)
  1. TIVDAK [Suspect]
     Active Substance: TISOTUMAB VEDOTIN-TFTV
     Indication: Cervix carcinoma recurrent
     Dosage: ONCE A DAY, EVERY 3 WEEKS
     Dates: end: 20240805

REACTIONS (2)
  - Delirium [Unknown]
  - Confusional state [Unknown]
